FAERS Safety Report 17131236 (Version 2)
Quarter: 2020Q1

REPORT INFORMATION
  Report Type: Report from Study
  Country: US (occurrence: US)
  Receive Date: 20191209
  Receipt Date: 20200102
  Transmission Date: 20200409
  Serious: Yes (Death)
  Sender: FDA-Public Use
  Company Number: US-EXELIXIS-CABO-19024021

PATIENT
  Sex: Male
  Weight: 52 kg

DRUGS (12)
  1. SYMBICORT [Concomitant]
     Active Substance: BUDESONIDE\FORMOTEROL FUMARATE DIHYDRATE
  2. MORPHINE SULFATE. [Concomitant]
     Active Substance: MORPHINE SULFATE
     Indication: PAIN
  3. FUROSEMIDE. [Concomitant]
     Active Substance: FUROSEMIDE
  4. AMLODIPINE BESYLATE. [Concomitant]
     Active Substance: AMLODIPINE BESYLATE
     Dosage: UNK
  5. CABOMETYX [Suspect]
     Active Substance: CABOZANTINIB S-MALATE
     Indication: RENAL CANCER METASTATIC
     Dosage: 60 MG, QD
     Route: 048
     Dates: start: 20181227
  6. ASPIRIN. [Concomitant]
     Active Substance: ASPIRIN
  7. CALCIUM CARBONATE. [Concomitant]
     Active Substance: CALCIUM CARBONATE
     Dosage: UNK
  8. CARVEDILOL. [Concomitant]
     Active Substance: CARVEDILOL
  9. ATORVASTATIN CALCIUM. [Concomitant]
     Active Substance: ATORVASTATIN CALCIUM
  10. ONDANSETRON HCL [Concomitant]
     Active Substance: ONDANSETRON HYDROCHLORIDE
  11. CALCIUM +D [Concomitant]
     Active Substance: CALCIUM\VITAMIN D
     Dosage: UNK
  12. XGEVA [Suspect]
     Active Substance: DENOSUMAB
     Indication: RENAL CANCER METASTATIC
     Dosage: UNK

REACTIONS (3)
  - Hypocalcaemia [Unknown]
  - Cardiac failure congestive [Fatal]
  - Nausea [Unknown]
